FAERS Safety Report 19703368 (Version 1)
Quarter: 2021Q3

REPORT INFORMATION
  Report Type: Report from Study
  Country: None (occurrence: US)
  Receive Date: 20210816
  Receipt Date: 20210816
  Transmission Date: 20211014
  Serious: No
  Sender: FDA-Public Use
  Company Number: US-ABBVIE-21K-163-4031694-00

PATIENT
  Age: 30 Year
  Sex: Female

DRUGS (1)
  1. HUMIRA [Suspect]
     Active Substance: ADALIMUMAB
     Indication: CROHN^S DISEASE
     Route: 058
     Dates: start: 202103

REACTIONS (4)
  - Crohn^s disease [Recovering/Resolving]
  - Poor quality sleep [Recovering/Resolving]
  - Hypophagia [Recovering/Resolving]
  - Ovarian cyst [Recovering/Resolving]

NARRATIVE: CASE EVENT DATE: 20210520
